FAERS Safety Report 7973117-2 (Version None)
Quarter: 2011Q4

REPORT INFORMATION
  Report Type: 
  Country: None (occurrence: None)
  Receive Date: 20111213
  Receipt Date: 20111208
  Transmission Date: 20120403
  Serious: Yes (Other)
  Sender: FDA-Public Use
  Company Number: US-AMGEN-USASP2011021939

PATIENT
  Age: 56 Year
  Sex: Female
  Weight: 130 kg

DRUGS (4)
  1. TENORMIN [Concomitant]
  2. NPLATE [Suspect]
     Indication: IDIOPATHIC THROMBOCYTOPENIC PURPURA
     Dosage: 500 MUG, UNK
     Route: 058
     Dates: start: 20090625, end: 20110127
  3. ABILIFY [Concomitant]
  4. LASIX [Concomitant]

REACTIONS (1)
  - THERAPEUTIC RESPONSE DECREASED [None]
